FAERS Safety Report 4523916-4 (Version None)
Quarter: 2004Q4

REPORT INFORMATION
  Report Type: 
  Country: None (occurrence: None)
  Receive Date: 20041209
  Receipt Date: 20041129
  Transmission Date: 20050328
  Serious: Yes (Other)
  Sender: FDA-Public Use
  Company Number: HQWYE714101DEC04

PATIENT
  Sex: 0

DRUGS (1)
  1. EFFEOXR XR   (VENLFAXINE HYDROCHLORIDE,) [Suspect]

REACTIONS (1)
  - DRUG ABUSER [None]
